FAERS Safety Report 9613901 (Version 3)
Quarter: 2013Q4

REPORT INFORMATION
  Report Type: Report from Study
  Country: FR (occurrence: FR)
  Receive Date: 20131010
  Receipt Date: 20131029
  Transmission Date: 20140711
  Serious: Yes (Hospitalization)
  Sender: FDA-Public Use
  Company Number: FR-ROCHE-1274826

PATIENT
  Age: 57 Year
  Sex: Male
  Weight: 72.5 kg

DRUGS (5)
  1. VEMURAFENIB [Suspect]
     Indication: NEOPLASM MALIGNANT
     Dosage: LAST DOSE PRIOR TO SAE ON 10/SEP/2013
     Route: 048
     Dates: start: 20130905, end: 20130912
  2. VEMURAFENIB [Suspect]
     Route: 048
     Dates: start: 20130919
  3. PARACETAMOL [Concomitant]
     Route: 065
     Dates: start: 201308
  4. INNOHEP [Concomitant]
     Route: 065
     Dates: start: 201301
  5. OMEXEL L.P. [Concomitant]
     Route: 065
     Dates: start: 2005

REACTIONS (1)
  - Hypersensitivity [Recovered/Resolved]
